FAERS Safety Report 5466307-4 (Version None)
Quarter: 2007Q3

REPORT INFORMATION
  Report Type: 
  Country: None (occurrence: None)
  Receive Date: 20070920
  Receipt Date: 20070720
  Transmission Date: 20080115
  Serious: Yes (Hospitalization)
  Sender: FDA-Public Use
  Company Number: 2007US001106

PATIENT
  Age: 41 Year
  Sex: Female

DRUGS (1)
  1. AMEVIVE [Suspect]
     Indication: PSORIASIS
     Dates: start: 20050101, end: 20050101

REACTIONS (6)
  - CELLULITIS [None]
  - DEHYDRATION [None]
  - DIARRHOEA [None]
  - EAR INFECTION [None]
  - MALAISE [None]
  - VOMITING [None]
